FAERS Safety Report 19892746 (Version 1)
Quarter: 2021Q3

REPORT INFORMATION
  Report Type: Spontaneous
  Country: US (occurrence: US)
  Receive Date: 20210928
  Receipt Date: 20210928
  Transmission Date: 20211014
  Serious: Yes (Other)
  Sender: FDA-Public Use
  Company Number: US-UPSHER-SMITH LABORATORIES, LLC-2021USL00669

PATIENT
  Age: 79 Year
  Sex: Male

DRUGS (9)
  1. CARBIDOPA?LEVODOPA [Concomitant]
     Active Substance: CARBIDOPA\LEVODOPA
  2. PREDNISONE. [Concomitant]
     Active Substance: PREDNISONE
  3. AMANTADINE HYDROCHLORIDE. [Suspect]
     Active Substance: AMANTADINE HYDROCHLORIDE
     Indication: PARKINSON^S DISEASE
     Dosage: 100 MG, 3X/DAY
     Route: 048
  4. MIDODRINE [Concomitant]
     Active Substance: MIDODRINE
  5. KLOR?CON [Concomitant]
     Active Substance: POTASSIUM CHLORIDE
  6. AMLODIPINE [Concomitant]
     Active Substance: AMLODIPINE BESYLATE
  7. FLORINEF ACETATE [Concomitant]
     Active Substance: FLUDROCORTISONE ACETATE
  8. MODAFINIL. [Concomitant]
     Active Substance: MODAFINIL
  9. UNSPECIFIED CHEMOTHERAPEUTIC INFUSIONS [Concomitant]
     Dosage: UNK

REACTIONS (2)
  - Fatigue [Not Recovered/Not Resolved]
  - Hypernatraemia [Unknown]

NARRATIVE: CASE EVENT DATE: 20210908
